FAERS Safety Report 7677052-9 (Version None)
Quarter: 2011Q3

REPORT INFORMATION
  Report Type: 
  Country: None (occurrence: None)
  Receive Date: 20110811
  Receipt Date: 20110809
  Transmission Date: 20111222
  Serious: Yes (Death)
  Sender: FDA-Public Use
  Company Number: JP-SANOFI-AVENTIS-2011SA050965

PATIENT
  Age: 58 Year
  Sex: Female

DRUGS (5)
  1. OXALIPLATIN [Suspect]
     Indication: COLON CANCER METASTATIC
     Route: 041
     Dates: start: 20100705, end: 20101105
  2. LEUCOVORIN CALCIUM [Concomitant]
     Dates: start: 20100705, end: 20110101
  3. AVASTIN [Suspect]
     Indication: COLON CANCER METASTATIC
     Route: 041
     Dates: start: 20100804, end: 20110405
  4. FLUOROURACIL [Concomitant]
     Dates: start: 20100705, end: 20110101
  5. TOPOTECAN [Suspect]
     Indication: COLON CANCER METASTATIC
     Dosage: DOSE: 1 PER 3 WEEKS
     Route: 042
     Dates: start: 20110215

REACTIONS (3)
  - CARDIO-RESPIRATORY ARREST [None]
  - INFUSION RELATED REACTION [None]
  - ABDOMINAL PAIN LOWER [None]
